FAERS Safety Report 5029865-X (Version None)
Quarter: 2006Q2

REPORT INFORMATION
  Report Type: 
  Country: None (occurrence: None)
  Receive Date: 20060620
  Receipt Date: 20060320
  Transmission Date: 20061013
  Serious: No
  Sender: FDA-Public Use
  Company Number: 2006UW04687

PATIENT
  Age: 57 Year
  Sex: Female
  Weight: 81.6 kg

DRUGS (8)
  1. CRESTOR [Suspect]
     Indication: BLOOD CHOLESTEROL INCREASED
     Route: 048
     Dates: start: 20050101
  2. ATENOLOL [Concomitant]
  3. PRILOSEC OTC [Concomitant]
  4. SPIRONOLACTONE [Concomitant]
  5. LEVOTHYROXINE SODIUM [Concomitant]
  6. OXYBUTYNIN [Concomitant]
  7. CALCIUM GLUCONATE [Concomitant]
  8. VITAMIN B COMPLEX CAP [Concomitant]

REACTIONS (1)
  - CARBOHYDRATE ANTIGEN 15-3 INCREASED [None]
